FAERS Safety Report 6716351-1 (Version None)
Quarter: 2010Q2

REPORT INFORMATION
  Report Type: 
  Country: None (occurrence: None)
  Receive Date: 20100507
  Receipt Date: 20100420
  Transmission Date: 20101027
  Serious: No
  Sender: FDA-Public Use
  Company Number: PHHY2010DE27714

PATIENT
  Sex: Female

DRUGS (3)
  1. CIBADREX [Suspect]
     Dosage: 0.5 DF (1 IN 1 DAY)
     Dates: start: 20060101
  2. CONCOR [Concomitant]
     Dosage: 0.5 DF (01 IN 1 DAY)
     Dates: start: 20060101
  3. BISOPROLOL [Concomitant]
     Dosage: 0.5 DF (01 TABLET IN 1 DAY)

REACTIONS (2)
  - FATIGUE [None]
  - HYPOTENSION [None]
